FAERS Safety Report 6793131-2 (Version None)
Quarter: 2010Q2

REPORT INFORMATION
  Report Type: 
  Country: None (occurrence: None)
  Receive Date: 20100624
  Receipt Date: 20090716
  Transmission Date: 20101027
  Serious: Yes (Death, Hospitalization)
  Sender: FDA-Public Use
  Company Number: US-MYLANLABS-2009S1009522

PATIENT
  Age: 66 Year
  Sex: Female

DRUGS (4)
  1. CLOZAPINE [Suspect]
     Route: 048
     Dates: end: 20090401
  2. METHYLPHENIDATE [Concomitant]
  3. NEURONTIN [Concomitant]
  4. HYDROCORTISONE [Concomitant]

REACTIONS (2)
  - PNEUMONIA [None]
  - SEPSIS [None]
